FAERS Safety Report 5860881-1 (Version None)
Quarter: 2008Q3

REPORT INFORMATION
  Report Type: 
  Country: None (occurrence: None)
  Receive Date: 20080827
  Receipt Date: 20071218
  Transmission Date: 20090109
  Serious: No
  Sender: FDA-Public Use
  Company Number: US-ABBOTT-07P-163-0431249-00

PATIENT
  Sex: Female

DRUGS (1)
  1. COATED PDS [Suspect]
     Indication: DRUG USE FOR UNKNOWN INDICATION
     Route: 048
     Dates: start: 20071214, end: 20071215

REACTIONS (8)
  - CHILLS [None]
  - DISORIENTATION [None]
  - DIZZINESS [None]
  - FLUSHING [None]
  - NAUSEA [None]
  - RASH [None]
  - SYNCOPE [None]
  - VOMITING [None]
